FAERS Safety Report 20415571 (Version 1)
Quarter: 2022Q1

REPORT INFORMATION
  Report Type: Spontaneous
  Country: BR (occurrence: BR)
  Receive Date: 20220202
  Receipt Date: 20220202
  Transmission Date: 20220423
  Serious: Yes (Disabling, Other)
  Sender: FDA-Public Use
  Company Number: BR-NOVARTISPH-NVSC2022BR019104

PATIENT
  Age: 12 Year
  Sex: Male

DRUGS (3)
  1. TEGRETOL [Suspect]
     Active Substance: CARBAMAZEPINE
     Indication: Product used for unknown indication
     Dosage: UNK
     Route: 065
     Dates: start: 20190525, end: 20210720
  2. TEGRETOL XR [Suspect]
     Active Substance: CARBAMAZEPINE
     Indication: Product used for unknown indication
     Dosage: UNK (STRENGTH: 400 MG)
     Route: 065
     Dates: start: 20210721
  3. TEGRETOL XR [Suspect]
     Active Substance: CARBAMAZEPINE
     Dosage: UNK (STRENGTH: 200 MG)
     Route: 065
     Dates: start: 20210818

REACTIONS (6)
  - Dyskinesia [Unknown]
  - Seizure [Unknown]
  - Neurodegenerative disorder [Unknown]
  - Feeding disorder [Unknown]
  - Stress [Unknown]
  - Wrong technique in product usage process [Not Recovered/Not Resolved]

NARRATIVE: CASE EVENT DATE: 20210818
